FAERS Safety Report 8056429-6 (Version None)
Quarter: 2011Q4

REPORT INFORMATION
  Report Type: 
  Country: None (occurrence: None)
  Receive Date: 20111219
  Receipt Date: 20111012
  Transmission Date: 20120403
  Serious: Yes (Life-Threatening, Hospitalization)
  Sender: FDA-Public Use
  Company Number: WAES 1110USA01941

PATIENT
  Age: 81 Year
  Sex: Female

DRUGS (4)
  1. SIMVASTATIN [Concomitant]
  2. JANUVIA [Suspect]
     Indication: DIABETES MELLITUS
     Dosage: 100 MG/DAILY/PO
     Route: 048
     Dates: start: 20090624, end: 20091216
  3. LEVOTHYROXINE SODIUM [Concomitant]
  4. LANTUS [Concomitant]

REACTIONS (1)
  - PANCREATITIS [None]
